FAERS Safety Report 5062436-8 (Version None)
Quarter: 2006Q3

REPORT INFORMATION
  Report Type: 
  Country: None (occurrence: None)
  Receive Date: 20060721
  Receipt Date: 20060706
  Transmission Date: 20061208
  Serious: Yes (Hospitalization)
  Sender: FDA-Public Use
  Company Number: HN200607001538

PATIENT
  Age: 70 Year
  Sex: Female

DRUGS (1)
  1. HUMULIN N [Suspect]
     Dosage: SUBCUTANEOUS
     Route: 058

REACTIONS (1)
  - INJECTION SITE ABSCESS [None]
